FAERS Safety Report 19804793 (Version 2)
Quarter: 2021Q4

REPORT INFORMATION
  Report Type: Spontaneous
  Country: EG (occurrence: EG)
  Receive Date: 20210908
  Receipt Date: 20211012
  Transmission Date: 20220304
  Serious: Yes (Death, Hospitalization)
  Sender: FDA-Public Use
  Company Number: EG-PFIZER INC-2021195893

PATIENT
  Age: 66 Year
  Sex: Male

DRUGS (1)
  1. SUTENT [Suspect]
     Active Substance: SUNITINIB MALATE
     Indication: Gastrointestinal stromal tumour
     Dosage: 50 MG, CYCLIC (1X/DAY FOR 2 CONSECUTIVE WEEKS, FOLLOWED BY A 1-WEEK REST PERIOD (SCHEDULE  2/1))
     Route: 048
     Dates: start: 20210121, end: 202109

REACTIONS (7)
  - Cardiac failure [Fatal]
  - Dry mouth [Unknown]
  - Decreased appetite [Unknown]
  - Dehydration [Unknown]
  - Myalgia [Unknown]
  - Mouth ulceration [Unknown]
  - Diarrhoea [Unknown]
